FAERS Safety Report 11660903 (Version 1)
Quarter: 2015Q4

REPORT INFORMATION
  Report Type: Spontaneous
  Country: JP (occurrence: JP)
  Receive Date: 20151026
  Receipt Date: 20151026
  Transmission Date: 20160304
  Serious: Yes (Death)
  Sender: FDA-Public Use
  Company Number: JP-ELI_LILLY_AND_COMPANY-JP201510007959

PATIENT
  Age: 65 Year
  Sex: Female

DRUGS (2)
  1. CYRAMZA [Suspect]
     Active Substance: RAMUCIRUMAB
     Indication: GASTRIC CANCER
     Route: 042
  2. PACLITAXEL. [Concomitant]
     Active Substance: PACLITAXEL
     Indication: GASTRIC CANCER
     Route: 042

REACTIONS (1)
  - Febrile neutropenia [Fatal]
